FAERS Safety Report 15759688 (Version 1)
Quarter: 2018Q4

REPORT INFORMATION
  Report Type: Other
  Country: IT (occurrence: IT)
  Receive Date: 20181226
  Receipt Date: 20181226
  Transmission Date: 20190205
  Serious: Yes (Other)
  Sender: FDA-Public Use
  Company Number: IT-CELLTRION INC.-2018IT018403

PATIENT

DRUGS (4)
  1. TRUXIMA [Suspect]
     Active Substance: RITUXIMAB-ABBS
     Indication: HODGKIN^S DISEASE
     Dosage: 600 MG 1 CYCLE
     Route: 042
     Dates: start: 20180219, end: 20180219
  2. TRUXIMA [Suspect]
     Active Substance: RITUXIMAB-ABBS
     Dosage: 600 MG 1 CYCLE
     Route: 042
     Dates: start: 20180219, end: 20180219
  3. TACHIPIRINA [Concomitant]
     Active Substance: ACETAMINOPHEN
     Indication: PREMEDICATION
     Dosage: 1 G (16 TABLETS)
     Route: 048
     Dates: start: 20180219, end: 20180219
  4. BENDAMUSTINE [Concomitant]
     Active Substance: BENDAMUSTINE
     Dosage: 125 MG
     Route: 042

REACTIONS (5)
  - Oral discomfort [Recovered/Resolved]
  - Lip oedema [Recovered/Resolved]
  - Dry mouth [Recovered/Resolved]
  - Erythema [Recovered/Resolved]
  - Off label use [Unknown]

NARRATIVE: CASE EVENT DATE: 20180219
